FAERS Safety Report 9272703 (Version 1)
Quarter: 2013Q2

REPORT INFORMATION
  Report Type: Spontaneous
  Country: US (occurrence: US)
  Receive Date: 20130506
  Receipt Date: 20130506
  Transmission Date: 20140414
  Serious: No
  Sender: FDA-Public Use
  Company Number: US-ASTRAZENECA-2012SE60781

PATIENT
  Sex: Female

DRUGS (3)
  1. PRILOSEC OTC [Suspect]
     Indication: DYSPEPSIA
     Route: 048
     Dates: start: 20120722, end: 20120729
  2. ATENOLOL [Concomitant]
     Dosage: UNKNOWN
  3. HYDROCHLOROTHIAZIDE [Concomitant]
     Dosage: UNKNOWN

REACTIONS (5)
  - Dyspnoea [Recovered/Resolved]
  - Chest discomfort [Recovered/Resolved]
  - Gastric disorder [Recovered/Resolved]
  - Abdominal distension [Recovered/Resolved]
  - Oropharyngeal discomfort [Recovered/Resolved]
